FAERS Safety Report 6385273-0 (Version None)
Quarter: 2009Q4

REPORT INFORMATION
  Report Type: 
  Country: None (occurrence: None)
  Receive Date: 20091002
  Receipt Date: 20081112
  Transmission Date: 20100525
  Serious: No
  Sender: FDA-Public Use
  Company Number: US-ASTRAZENECA-2008UW16647

PATIENT
  Age: 72 Year
  Sex: Female

DRUGS (7)
  1. ARIMIDEX [Suspect]
     Indication: BREAST CANCER FEMALE
     Route: 048
     Dates: start: 20051201
  2. COZAAR [Concomitant]
     Route: 048
  3. LIPITOR [Concomitant]
  4. WARFARIN SODIUM [Concomitant]
  5. POTASSIUM CHLORIDE [Concomitant]
  6. FUROSEMIDE [Concomitant]
  7. LANOXIN [Concomitant]

REACTIONS (5)
  - BLOOD PRESSURE DIASTOLIC DECREASED [None]
  - BLOOD PRESSURE INCREASED [None]
  - BLOOD PRESSURE SYSTOLIC INCREASED [None]
  - MUSCULOSKELETAL STIFFNESS [None]
  - URINARY TRACT INFECTION [None]
